FAERS Safety Report 10643466 (Version 3)
Quarter: 2016Q2

REPORT INFORMATION
  Report Type: Report from Study
  Country: US (occurrence: US)
  Receive Date: 20141210
  Receipt Date: 20160617
  Transmission Date: 20160815
  Serious: Yes (Other)
  Sender: FDA-Public Use
  Company Number: US-ARIAD PHARMACEUTICALS, INC-2014US003982

PATIENT

DRUGS (1)
  1. ICLUSIG [Suspect]
     Active Substance: PONATINIB
     Indication: CHRONIC MYELOID LEUKAEMIA
     Dosage: 30 MG, QD
     Route: 048

REACTIONS (5)
  - Back pain [Not Recovered/Not Resolved]
  - Bronchitis [Recovered/Resolved]
  - Lung neoplasm malignant [Unknown]
  - Blood pressure abnormal [Unknown]
  - Facial paralysis [Not Recovered/Not Resolved]
